FAERS Safety Report 22246398 (Version 10)
Quarter: 2025Q1

REPORT INFORMATION
  Report Type: Report from Study
  Country: US (occurrence: US)
  Receive Date: 20230424
  Receipt Date: 20250304
  Transmission Date: 20250408
  Serious: Yes (Hospitalization, Other)
  Sender: TAKEDA
  Company Number: US-TAKEDA-2023TUS040701

PATIENT
  Age: 62 Year
  Sex: Female
  Weight: 93 kg

DRUGS (56)
  1. GLASSIA [Suspect]
     Active Substance: .ALPHA.1-PROTEINASE INHIBITOR HUMAN
     Indication: Alpha-1 antitrypsin deficiency
     Dosage: UNK UNK, 1/WEEK
     Dates: start: 20230406
  2. GLASSIA [Suspect]
     Active Substance: .ALPHA.1-PROTEINASE INHIBITOR HUMAN
     Dosage: 60 MILLIGRAM/KILOGRAM, 1/WEEK
     Dates: start: 20230407
  3. EPINEPHRINE [Concomitant]
     Active Substance: EPINEPHRINE
  4. METOPROLOL TARTRATE [Concomitant]
     Active Substance: METOPROLOL TARTRATE
  5. FLOVENT HFA [Concomitant]
     Active Substance: FLUTICASONE PROPIONATE
  6. VITAMIN C [Concomitant]
     Active Substance: ASCORBIC ACID
  7. FLECAINIDE ACETATE [Concomitant]
     Active Substance: FLECAINIDE ACETATE
  8. SODIUM CHLORIDE [Concomitant]
     Active Substance: SODIUM CHLORIDE
  9. GUAIFENESIN DM [Concomitant]
     Active Substance: DEXTROMETHORPHAN\DEXTROMETHORPHAN HYDROBROMIDE\GUAIFENESIN
  10. ALBUTEROL SULFATE [Concomitant]
     Active Substance: ALBUTEROL SULFATE
  11. FLONASE ALLERGY RELIEF [Concomitant]
     Active Substance: FLUTICASONE PROPIONATE
  12. HEPARIN [Concomitant]
     Active Substance: HEPARIN SODIUM
  13. ALBUTEROL SULFATE [Concomitant]
     Active Substance: ALBUTEROL SULFATE
  14. LIDOCAINE [Concomitant]
     Active Substance: LIDOCAINE
  15. OMEPRAZOLE [Concomitant]
     Active Substance: OMEPRAZOLE
  16. ALLEGRA-D [Concomitant]
     Active Substance: FEXOFENADINE HYDROCHLORIDE\PSEUDOEPHEDRINE HYDROCHLORIDE
  17. PREDNISONE [Concomitant]
     Active Substance: PREDNISONE
  18. PROLASTIN [Concomitant]
     Active Substance: .ALPHA.1-PROTEINASE INHIBITOR HUMAN
  19. DIPHENHYDRAMINE HYDROCHLORIDE [Concomitant]
     Active Substance: DIPHENHYDRAMINE HYDROCHLORIDE
  20. STIOLTO RESPIMAT [Concomitant]
     Active Substance: OLODATEROL HYDROCHLORIDE\TIOTROPIUM BROMIDE MONOHYDRATE
  21. ACETAMINOPHEN [Concomitant]
     Active Substance: ACETAMINOPHEN
  22. CUVITRU [Concomitant]
     Active Substance: HUMAN IMMUNOGLOBULIN G
  23. GLYBURIDE [Concomitant]
     Active Substance: GLYBURIDE
  24. AIMOVIG [Concomitant]
     Active Substance: ERENUMAB-AOOE
  25. TRULICITY [Concomitant]
     Active Substance: DULAGLUTIDE
  26. BOTOX [Concomitant]
     Active Substance: ONABOTULINUMTOXINA
  27. UBRELVY [Concomitant]
     Active Substance: UBROGEPANT
  28. ILARIS [Concomitant]
     Active Substance: CANAKINUMAB
  29. CLONAZEPAM [Concomitant]
     Active Substance: CLONAZEPAM
  30. ASPIRIN [Concomitant]
     Active Substance: ASPIRIN
  31. BACLOFEN [Concomitant]
     Active Substance: BACLOFEN
  32. LAMICTAL [Concomitant]
     Active Substance: LAMOTRIGINE
  33. COLCHICINE [Concomitant]
     Active Substance: COLCHICINE
  34. NOVOLOG [Concomitant]
     Active Substance: INSULIN ASPART
  35. FERROUS SULFATE [Concomitant]
     Active Substance: FERROUS SULFATE
  36. PREGABALIN [Concomitant]
     Active Substance: PREGABALIN
  37. DULOXETINE [Concomitant]
     Active Substance: DULOXETINE
  38. CRESTOR [Concomitant]
     Active Substance: ROSUVASTATIN CALCIUM
  39. FUROSEMIDE [Concomitant]
     Active Substance: FUROSEMIDE
  40. FENOFIBRATE [Concomitant]
     Active Substance: FENOFIBRATE
  41. CETIRIZINE [Concomitant]
     Active Substance: CETIRIZINE HYDROCHLORIDE
  42. ONDANSETRON [Concomitant]
     Active Substance: ONDANSETRON
  43. TOPIRAMATE [Concomitant]
     Active Substance: TOPIRAMATE
  44. VITAMIN B2 [Concomitant]
     Active Substance: RIBOFLAVIN
  45. VITAMIN B12 [Concomitant]
     Active Substance: CYANOCOBALAMIN
  46. FISH OIL [Concomitant]
     Active Substance: FISH OIL
  47. ISOSORBIDE MONONITRATE [Concomitant]
     Active Substance: ISOSORBIDE MONONITRATE
  48. MAGNESIUM [Concomitant]
     Active Substance: MAGNESIUM
  49. MECLIZINE [Concomitant]
     Active Substance: MECLIZINE HYDROCHLORIDE
  50. CALCIUM [Concomitant]
     Active Substance: CALCIUM
  51. NITROGLYCERIN [Concomitant]
     Active Substance: NITROGLYCERIN
  52. BUDESONIDE [Concomitant]
     Active Substance: BUDESONIDE
  53. POTASSIUM CHLORIDE [Concomitant]
     Active Substance: POTASSIUM CHLORIDE
  54. SULFAMETHOXAZOLE AND TRIMETHOPRIM [Concomitant]
     Active Substance: SULFAMETHOXAZOLE\TRIMETHOPRIM
  55. VITAMIN D3 [Concomitant]
     Active Substance: CHOLECALCIFEROL
  56. AMOXICILLIN\CLAVULANATE POTASSIUM [Concomitant]
     Active Substance: AMOXICILLIN\CLAVULANATE POTASSIUM

REACTIONS (13)
  - Hypoxia [Unknown]
  - Pneumonia [Unknown]
  - Chronic obstructive pulmonary disease [Unknown]
  - Multiple allergies [Not Recovered/Not Resolved]
  - Respiratory tract infection [Unknown]
  - Medical device site scar [Unknown]
  - Neck pain [Unknown]
  - Device issue [Unknown]
  - Device dislocation [Unknown]
  - Weight decreased [Unknown]
  - Alpha-1 antitrypsin deficiency [Unknown]
  - Pain [Unknown]
  - Flushing [Unknown]

NARRATIVE: CASE EVENT DATE: 20241112
